FAERS Safety Report 5624909-6 (Version None)
Quarter: 2008Q1

REPORT INFORMATION
  Report Type: 
  Country: None (occurrence: None)
  Receive Date: 20080213
  Receipt Date: 20080206
  Transmission Date: 20080703
  Serious: Yes (Hospitalization)
  Sender: FDA-Public Use
  Company Number: US-GENENTECH-249623

PATIENT
  Age: 44 Year
  Sex: Female

DRUGS (9)
  1. XOLAIR [Suspect]
     Indication: ASTHMA
     Dosage: 300 MG, Q4H
     Route: 030
     Dates: start: 20070910
  2. NASONEX [Concomitant]
     Indication: RHINITIS ALLERGIC
     Route: 045
     Dates: start: 20060501
  3. CLARINEX [Concomitant]
     Indication: RHINITIS ALLERGIC
     Dosage: 5 MG, QD
     Route: 048
     Dates: start: 20040101
  4. ADVAIR DISKUS 100/50 [Concomitant]
     Indication: ASTHMA
     Dosage: 2 PUFF, BID
     Dates: start: 20070601
  5. ASTELIN [Concomitant]
     Indication: RHINITIS ALLERGIC
     Dosage: 2 UNK, BID
     Route: 045
     Dates: start: 20070601
  6. SINGULAIR [Concomitant]
     Indication: ASTHMA
     Dosage: 10 MG, QD
     Route: 048
     Dates: start: 20040101
  7. SINUS RINSE (UNK INGREDIENTS) [Concomitant]
     Indication: SINUS OPERATION
     Dosage: UNK, QD
     Dates: start: 20060501
  8. MEDICATION (UNK INGREDIENT) [Concomitant]
     Indication: DRUG USE FOR UNKNOWN INDICATION
  9. MEDICATION (UNK INGREDIENT) [Concomitant]

REACTIONS (5)
  - BLOOD PRESSURE INCREASED [None]
  - CHEST DISCOMFORT [None]
  - HYPERSENSITIVITY [None]
  - HYPOXIA [None]
  - THROAT IRRITATION [None]
